FAERS Safety Report 4337359-X (Version None)
Quarter: 2004Q2

REPORT INFORMATION
  Report Type: 
  Country: None (occurrence: None)
  Receive Date: 20040413
  Receipt Date: 20040315
  Transmission Date: 20050107
  Serious: Yes (Other)
  Sender: FDA-Public Use
  Company Number: 200413467GDDC

PATIENT
  Age: 50 Year
  Sex: Male

DRUGS (4)
  1. KETEK [Suspect]
     Indication: LOWER RESPIRATORY TRACT INFECTION
     Route: 048
     Dates: start: 20040226, end: 20040304
  2. B2 MIMETICS [Concomitant]
     Indication: CHRONIC OBSTRUCTIVE AIRWAYS DISEASE
     Dosage: DOSE: UNK
     Route: 048
  3. B2 MIMETIC+STEROID [Concomitant]
     Indication: CHRONIC OBSTRUCTIVE AIRWAYS DISEASE
     Dosage: DOSE: UNK
     Route: 055
  4. ANALGESIC LIQ [Concomitant]
     Indication: PYREXIA
     Dosage: DOSE: UNK

REACTIONS (2)
  - ARTHRALGIA [None]
  - MUSCLE CRAMP [None]
